FAERS Safety Report 20330984 (Version 7)
Quarter: 2024Q3

REPORT INFORMATION
  Report Type: Report from Study
  Country: US (occurrence: US)
  Receive Date: 20220113
  Receipt Date: 20240805
  Transmission Date: 20241017
  Serious: Yes (Hospitalization, Other)
  Sender: SANOFI AVENTIS
  Company Number: US-SA-SAC20220110000060

PATIENT
  Age: 16 Year
  Sex: Male

DRUGS (10)
  1. EFMOROCTOCOG ALFA [Suspect]
     Active Substance: EFMOROCTOCOG ALFA
     Indication: Factor VIII deficiency
     Dosage: 4500 U; QD
     Route: 042
     Dates: start: 20201030
  2. EFMOROCTOCOG ALFA [Suspect]
     Active Substance: EFMOROCTOCOG ALFA
     Indication: Factor VIII deficiency
     Dosage: 4500 U; QD
     Route: 042
     Dates: start: 20201030
  3. EFMOROCTOCOG ALFA [Suspect]
     Active Substance: EFMOROCTOCOG ALFA
     Dosage: 4500 U; QD (AS DIRECTED BY PHYSICIAN)
     Route: 042
     Dates: start: 202110
  4. EFMOROCTOCOG ALFA [Suspect]
     Active Substance: EFMOROCTOCOG ALFA
     Dosage: 4500 U; QD (AS DIRECTED BY PHYSICIAN)
     Route: 042
     Dates: start: 202110
  5. EFMOROCTOCOG ALFA [Suspect]
     Active Substance: EFMOROCTOCOG ALFA
     Dosage: 4500 U, PRN
     Route: 042
     Dates: start: 202110
  6. EFMOROCTOCOG ALFA [Suspect]
     Active Substance: EFMOROCTOCOG ALFA
     Dosage: 4500 U, PRN
     Route: 042
     Dates: start: 202110
  7. EFMOROCTOCOG ALFA [Suspect]
     Active Substance: EFMOROCTOCOG ALFA
     Dosage: 4500 U; QD
     Route: 042
     Dates: start: 202202
  8. EFMOROCTOCOG ALFA [Suspect]
     Active Substance: EFMOROCTOCOG ALFA
     Dosage: 4500 U; QD
     Route: 042
     Dates: start: 202202
  9. EFMOROCTOCOG ALFA [Suspect]
     Active Substance: EFMOROCTOCOG ALFA
     Dosage: 4500 U; QD
     Route: 042
     Dates: start: 202203
  10. EFMOROCTOCOG ALFA [Suspect]
     Active Substance: EFMOROCTOCOG ALFA
     Dosage: 4500 U; QD
     Route: 042
     Dates: start: 202203

REACTIONS (6)
  - Haemorrhage [Unknown]
  - Haemorrhage [Not Recovered/Not Resolved]
  - Mobility decreased [Unknown]
  - Arthralgia [Unknown]
  - Feeling abnormal [Unknown]
  - Injury [Unknown]

NARRATIVE: CASE EVENT DATE: 20201101
